FAERS Safety Report 14275963 (Version 1)
Quarter: 2017Q4

REPORT INFORMATION
  Report Type: Spontaneous
  Country: US (occurrence: US)
  Receive Date: 20171212
  Receipt Date: 20171212
  Transmission Date: 20180321
  Serious: No
  Sender: FDA-Public Use
  Company Number: US-INCYTE CORPORATION-2017IN010443

PATIENT

DRUGS (8)
  1. METHADONE [Concomitant]
     Active Substance: METHADONE HYDROCHLORIDE
     Indication: PRODUCT USED FOR UNKNOWN INDICATION
  2. JAKAFI [Suspect]
     Active Substance: RUXOLITINIB
     Indication: MYELOPROLIFERATIVE NEOPLASM
     Dosage: 5MG, 1Q AM AND 2Q PM
     Route: 048
     Dates: start: 20150422
  3. JAKAFI [Suspect]
     Active Substance: RUXOLITINIB
     Dosage: 5MG, 1Q AM AND 2Q PM
     Route: 048
     Dates: start: 20150422
  4. INDERAL GRADUALE [Concomitant]
     Indication: PRODUCT USED FOR UNKNOWN INDICATION
  5. CYMBALTA [Concomitant]
     Active Substance: DULOXETINE HYDROCHLORIDE
     Indication: PRODUCT USED FOR UNKNOWN INDICATION
  6. JAKAFI [Suspect]
     Active Substance: RUXOLITINIB
     Dosage: 5MG 3 TABS QAM AND  2 TABS QPM
     Route: 048
     Dates: start: 20150422
  7. JAKAFI [Suspect]
     Active Substance: RUXOLITINIB
     Dosage: 5MG 3 TABS QAM AND 2 TABS QPM
     Route: 048
     Dates: start: 20150422
  8. DILAUDID [Concomitant]
     Active Substance: HYDROMORPHONE HYDROCHLORIDE
     Indication: PRODUCT USED FOR UNKNOWN INDICATION

REACTIONS (2)
  - Depression [Unknown]
  - Off label use [Unknown]

NARRATIVE: CASE EVENT DATE: 20150422
